FAERS Safety Report 8596176-5 (Version None)
Quarter: 2012Q3

REPORT INFORMATION
  Report Type: 
  Country: None (occurrence: None)
  Receive Date: 20120815
  Receipt Date: 20120814
  Transmission Date: 20120928
  Serious: Yes (Other)
  Sender: FDA-Public Use
  Company Number: US-GLAXOSMITHKLINE-A0987260A

PATIENT
  Age: 56 Year
  Sex: Female
  Weight: 62.7 kg

DRUGS (9)
  1. PROPRANOLOL [Suspect]
  2. ASPIRIN [Suspect]
  3. ATENOLOL [Suspect]
  4. INTERFERON BETA-1A [Suspect]
     Indication: MULTIPLE SCLEROSIS
     Dosage: 44MCG THREE TIMES PER WEEK
     Route: 058
     Dates: start: 20031017
  5. ALPRAZOLAM [Concomitant]
     Indication: PSYCHOTHERAPY
     Route: 048
  6. ASPIRIN [Suspect]
     Route: 048
  7. PLAVIX [Suspect]
     Route: 048
  8. VALIUM [Concomitant]
     Indication: PSYCHOTHERAPY
     Dosage: 2MG AS REQUIRED
  9. BUPROPION HCL [Concomitant]
     Indication: PSYCHOTHERAPY
     Route: 048

REACTIONS (8)
  - DYSGRAPHIA [None]
  - NAUSEA [None]
  - LACUNAR INFARCTION [None]
  - FALL [None]
  - HEAD INJURY [None]
  - GAIT DISTURBANCE [None]
  - CEREBRAL ISCHAEMIA [None]
  - HEADACHE [None]
